FAERS Safety Report 22651317 (Version 1)
Quarter: 2023Q2

REPORT INFORMATION
  Report Type: Spontaneous
  Country: AU (occurrence: AU)
  Receive Date: 20230628
  Receipt Date: 20230628
  Transmission Date: 20230721
  Serious: Yes (Other)
  Sender: FDA-Public Use
  Company Number: AU-PFM-2023-03619

PATIENT
  Age: 73 Year
  Sex: Female

DRUGS (4)
  1. ENCORAFENIB [Suspect]
     Active Substance: ENCORAFENIB
     Indication: Metastatic malignant melanoma
     Dosage: 300 MG, QD (1/DAY)
     Route: 065
     Dates: start: 20230418
  2. ENCORAFENIB [Suspect]
     Active Substance: ENCORAFENIB
     Indication: BRAF V600E mutation positive
     Dosage: INTERMITTENT DOSING PLAN (2 DAYS ON AND 2 DAYS OFF)
     Route: 065
  3. BINIMETINIB [Suspect]
     Active Substance: BINIMETINIB
     Indication: Metastatic malignant melanoma
     Dosage: 30 MG, BID (2/DAY)
     Route: 065
     Dates: start: 20230418
  4. BINIMETINIB [Suspect]
     Active Substance: BINIMETINIB
     Indication: BRAF V600E mutation positive
     Dosage: INTERMITTENT DOSING PLAN (2 DAYS ON AND 2 DAYS OFF)
     Route: 065

REACTIONS (3)
  - Ejection fraction decreased [Recovered/Resolved]
  - Polyuria [Unknown]
  - Ischaemia [Not Recovered/Not Resolved]
